FAERS Safety Report 6411951-0 (Version None)
Quarter: 2009Q4

REPORT INFORMATION
  Report Type: 
  Country: None (occurrence: None)
  Receive Date: 20091023
  Receipt Date: 20091012
  Transmission Date: 20100525
  Serious: Yes (Hospitalization, Other)
  Sender: FDA-Public Use
  Company Number: US-JNJFOC-20090606032

PATIENT
  Sex: Female
  Weight: 86.18 kg

DRUGS (6)
  1. REMICADE [Suspect]
     Route: 042
     Dates: start: 20070911, end: 20090729
  2. REMICADE [Suspect]
     Route: 042
     Dates: start: 20070911, end: 20090729
  3. REMICADE [Suspect]
     Route: 042
     Dates: start: 20070911, end: 20090729
  4. REMICADE [Suspect]
     Route: 042
     Dates: start: 20070911, end: 20090729
  5. REMICADE [Suspect]
     Route: 042
     Dates: start: 20070911, end: 20090729
  6. REMICADE [Suspect]
     Indication: COLITIS ULCERATIVE
     Route: 042
     Dates: start: 20070911, end: 20090729

REACTIONS (6)
  - COLITIS ULCERATIVE [None]
  - GALLBLADDER OPERATION [None]
  - HAEMORRHAGE [None]
  - PAIN [None]
  - THERAPEUTIC RESPONSE DECREASED [None]
  - VOMITING [None]
